FAERS Safety Report 6744635-X (Version None)
Quarter: 2010Q2

REPORT INFORMATION
  Report Type: 
  Country: None (occurrence: None)
  Receive Date: 20100526
  Receipt Date: 20100526
  Transmission Date: 20101027
  Serious: Yes (Other)
  Sender: FDA-Public Use
  Company Number: None

PATIENT
  Age: 21 Year
  Weight: 127.0072 kg

DRUGS (1)
  1. ZYRTEC-D 12 HOUR [Suspect]
     Indication: SEASONAL ALLERGY
     Dosage: 1 TABLET EVERY 12 HOURS PO
     Route: 048
     Dates: start: 20100506, end: 20100520

REACTIONS (4)
  - ANGER [None]
  - DEPERSONALISATION [None]
  - DEPRESSION [None]
  - NIGHTMARE [None]
